FAERS Safety Report 16658277 (Version 1)
Quarter: 2019Q3

REPORT INFORMATION
  Report Type: Spontaneous
  Country: DE (occurrence: DE)
  Receive Date: 20190801
  Receipt Date: 20190801
  Transmission Date: 20191004
  Serious: Yes (Hospitalization, Other)
  Sender: FDA-Public Use
  Company Number: DE-MYLANLABS-2019M1072332

PATIENT
  Age: 58 Year
  Sex: Female

DRUGS (6)
  1. CLOZAPINE. [Suspect]
     Active Substance: CLOZAPINE
     Indication: SCHIZOPHRENIA
     Dosage: 250 MILLIGRAM
     Route: 065
  2. CLOZAPINE. [Suspect]
     Active Substance: CLOZAPINE
     Dosage: 50 MILLIGRAM, QD
     Route: 065
  3. VENLAFAXINE [Concomitant]
     Active Substance: VENLAFAXINE HYDROCHLORIDE
     Indication: SCHIZOPHRENIA
     Dosage: UNK
     Route: 065
  4. CLOZAPINE. [Suspect]
     Active Substance: CLOZAPINE
     Dosage: 350 MILLIGRAM, QD
     Route: 065
  5. PIPAMPERONE [Concomitant]
     Active Substance: PIPAMPERONE
     Indication: SCHIZOPHRENIA
     Dosage: UNK
     Route: 065
  6. FLUPENTIXOL [Concomitant]
     Active Substance: FLUPENTIXOL
     Indication: SCHIZOPHRENIA
     Dosage: UNK
     Route: 065

REACTIONS (6)
  - Lung infiltration [Recovered/Resolved]
  - Pyrexia [Recovered/Resolved]
  - Fatigue [Recovered/Resolved]
  - Respiratory tract infection [Recovering/Resolving]
  - Antipsychotic drug level increased [Recovered/Resolved]
  - Productive cough [Recovered/Resolved]
